FAERS Safety Report 7178402-2 (Version None)
Quarter: 2010Q4

REPORT INFORMATION
  Report Type: 
  Country: None (occurrence: None)
  Receive Date: 20101220
  Receipt Date: 20101129
  Transmission Date: 20110411
  Serious: Yes (Other)
  Sender: FDA-Public Use
  Company Number: RU-ASTRAZENECA-2010SE59655

PATIENT
  Age: 50 Year
  Sex: Female

DRUGS (4)
  1. BETALOK ZOK [Suspect]
     Indication: HYPERTENSION
     Route: 048
     Dates: start: 20100909, end: 20101001
  2. BETALOK ZOK [Suspect]
     Indication: TACHYCARDIA
     Route: 048
     Dates: start: 20100909, end: 20101001
  3. LOSARTAN [Concomitant]
  4. ASPIRIN [Concomitant]

REACTIONS (1)
  - ELECTROCARDIOGRAM QT PROLONGED [None]
